FAERS Safety Report 22130151 (Version 1)
Quarter: 2023Q1

REPORT INFORMATION
  Report Type: Spontaneous
  Country: US (occurrence: None)
  Receive Date: 20230322
  Receipt Date: 20230322
  Transmission Date: 20230417
  Serious: Yes (Disabling)
  Sender: FDA-Public Use
  Company Number: None

PATIENT
  Age: 42 Year
  Sex: Female
  Weight: 86.4 kg

DRUGS (1)
  1. LOSARTAN POTASSIUM [Suspect]
     Active Substance: LOSARTAN POTASSIUM
     Indication: Hypertension
     Dosage: FREQUENCY : DAILY;?
     Route: 048
     Dates: start: 20230301, end: 20230319

REACTIONS (4)
  - Headache [None]
  - Eye pain [None]
  - Product substitution issue [None]
  - Loss of personal independence in daily activities [None]

NARRATIVE: CASE EVENT DATE: 20230301
